FAERS Safety Report 5860960-9 (Version None)
Quarter: 2008Q3

REPORT INFORMATION
  Report Type: 
  Country: None (occurrence: None)
  Receive Date: 20080827
  Receipt Date: 20080114
  Transmission Date: 20090109
  Serious: No
  Sender: FDA-Public Use
  Company Number: US-ABBOTT-08P-163-0433389-00

PATIENT
  Sex: Male
  Weight: 111.36 kg

DRUGS (4)
  1. NIASPAN [Suspect]
     Indication: BLOOD CHOLESTEROL INCREASED
     Route: 048
     Dates: start: 20080101
  2. EZETIMIBE [Concomitant]
     Indication: BLOOD CHOLESTEROL INCREASED
     Route: 048
  3. METFORMIN HYDROCHLORIDE [Concomitant]
     Indication: GLUCOSE TOLERANCE IMPAIRED
     Route: 048
  4. QUINORETIC [Concomitant]
     Indication: DIURETIC THERAPY
     Route: 048

REACTIONS (3)
  - ERYTHEMA [None]
  - GOUT [None]
  - LIMB DISCOMFORT [None]
